FAERS Safety Report 9170526 (Version 1)
Quarter: 2013Q1

REPORT INFORMATION
  Report Type: Spontaneous
  Country: US (occurrence: US)
  Receive Date: 20130319
  Receipt Date: 20130319
  Transmission Date: 20140127
  Serious: Yes (Hospitalization)
  Sender: FDA-Public Use
  Company Number: US-JNJFOC-20130307024

PATIENT
  Age: 87 Year
  Sex: Female
  Weight: 49.9 kg

DRUGS (2)
  1. ROGAINE FOR WOMEN REGULAR STRENGTH [Suspect]
     Route: 061
  2. ROGAINE FOR WOMEN REGULAR STRENGTH [Suspect]
     Indication: HAIR GROWTH ABNORMAL
     Dosage: A LITTLE BIT
     Route: 061

REACTIONS (2)
  - Drug ineffective [Unknown]
  - Hospitalisation [Unknown]
